FAERS Safety Report 4501842-4 (Version None)
Quarter: 2004Q4

REPORT INFORMATION
  Report Type: 
  Country: None (occurrence: None)
  Receive Date: 20041115
  Receipt Date: 20041115
  Transmission Date: 20050328
  Serious: Yes (Life-Threatening, Hospitalization)
  Sender: FDA-Public Use
  Company Number: None

PATIENT
  Age: 46 Year
  Sex: Male
  Weight: 89.9 kg

DRUGS (26)
  1. SEROQUEL [Suspect]
  2. METHOCARBAMOL [Concomitant]
  3. RANITIDINE [Concomitant]
  4. SERTRALINE HCL [Concomitant]
  5. TIMOLOL 0.5% OPHTH SOL [Concomitant]
  6. TRAMADOL [Concomitant]
  7. FENTANYL [Concomitant]
  8. MORPHINE SULFATE [Concomitant]
  9. SALSALATE [Concomitant]
  10. ALBUTEROL ORAL IHN [Concomitant]
  11. GABAPENTIN [Concomitant]
  12. METHOCARBAMOL [Concomitant]
  13. OMEPRAZOLE [Concomitant]
  14. ETODOLAC [Concomitant]
  15. GABAPENTIN [Concomitant]
  16. BACLOFEN [Concomitant]
  17. MUTLIVITAMIN [Concomitant]
  18. PIROXICAM [Concomitant]
  19. SENNA [Concomitant]
  20. TRAVOPROST 0.004% OPHTH SOL [Concomitant]
  21. DOCUSATE [Concomitant]
  22. NICOTINE CHEWING GUM [Concomitant]
  23. DIPHENHYDRAMINE [Concomitant]
  24. CYCLOBENZAPRINE [Concomitant]
  25. DIAZEPAM [Concomitant]
  26. HYDROCODONE 5.0 MG/ACETAMINOPHEN [Concomitant]

REACTIONS (2)
  - OVERDOSE [None]
  - SUPRAVENTRICULAR TACHYCARDIA [None]
